FAERS Safety Report 9082816 (Version 1)
Quarter: 2013Q1

REPORT INFORMATION
  Report Type: Spontaneous
  Country: US (occurrence: US)
  Receive Date: 20130130
  Receipt Date: 20130130
  Transmission Date: 20140127
  Serious: No
  Sender: FDA-Public Use
  Company Number: US-ABBOTT-12P-163-0973431-00

PATIENT
  Age: 15 Year
  Sex: Male

DRUGS (3)
  1. HUMIRA 40 MG/0.8 ML PEN [Suspect]
     Indication: INFLAMMATORY BOWEL DISEASE
     Dosage: ONE TIME DOSE
     Route: 058
     Dates: start: 20120728, end: 20120728
  2. HUMIRA 40 MG/0.8 ML PEN [Suspect]
     Dosage: ONE TIME DOSE
     Route: 058
     Dates: start: 20120811, end: 20120811
  3. HUMIRA 40 MG/0.8 ML PEN [Suspect]
     Route: 058
     Dates: start: 20120825

REACTIONS (2)
  - Off label use [Not Recovered/Not Resolved]
  - Device malfunction [Recovered/Resolved]
